FAERS Safety Report 9904006 (Version 2)
Quarter: 2014Q2

REPORT INFORMATION
  Report Type: Spontaneous
  Country: US (occurrence: US)
  Receive Date: 20140218
  Receipt Date: 20140414
  Transmission Date: 20141212
  Serious: No
  Sender: FDA-Public Use
  Company Number: US-BIOGENIDEC-2014BI012202

PATIENT
  Age: 45 Year
  Sex: Female

DRUGS (15)
  1. TECFIDERA [Suspect]
     Indication: MULTIPLE SCLEROSIS
     Route: 048
     Dates: start: 201303
  2. AVONEX [Concomitant]
     Indication: MULTIPLE SCLEROSIS
     Route: 030
  3. BACLOFEN [Concomitant]
  4. PERCOCET [Concomitant]
  5. ADDERALL [Concomitant]
  6. TERAZOSIN [Concomitant]
  7. CLONAZEPAM [Concomitant]
  8. B COMPLEX [Concomitant]
  9. CALCIUM + VITAMIN D3 [Concomitant]
  10. VITAMIN D3 [Concomitant]
  11. FIBER [Concomitant]
  12. CRANBERRY [Concomitant]
  13. PROBIOTIC [Concomitant]
  14. VITAMIN C WITH ROSE HIP [Concomitant]
  15. VITAMIN E [Concomitant]

REACTIONS (7)
  - Escherichia urinary tract infection [Recovered/Resolved]
  - Asthenia [Not Recovered/Not Resolved]
  - Muscular weakness [Not Recovered/Not Resolved]
  - Pain in extremity [Not Recovered/Not Resolved]
  - Bladder disorder [Not Recovered/Not Resolved]
  - Arthralgia [Not Recovered/Not Resolved]
  - Malaise [Unknown]
